FAERS Safety Report 5099805-6 (Version None)
Quarter: 2006Q3

REPORT INFORMATION
  Report Type: 
  Country: None (occurrence: None)
  Receive Date: 20060908
  Receipt Date: 20060814
  Transmission Date: 20061208
  Serious: Yes (Hospitalization)
  Sender: FDA-Public Use
  Company Number: SEWYE702915AUG06

PATIENT
  Sex: Female

DRUGS (6)
  1. ENBREL [Suspect]
     Indication: POLYARTHRITIS
     Dosage: 35 MG PER WEEK
     Route: 058
     Dates: end: 20060301
  2. ENBREL [Suspect]
     Dosage: 50 MG PER WEEK
     Route: 058
     Dates: start: 20060301
  3. SALAZOPYRIN [Suspect]
     Indication: CROHN'S DISEASE
     Dosage: 2 GRAM DAILY
     Route: 048
     Dates: start: 20060601, end: 20060706
  4. PREDNISOLONE [Concomitant]
  5. ISOPTO-MAXIDEX [Concomitant]
  6. FOLACIN [Concomitant]

REACTIONS (5)
  - FATIGUE [None]
  - LEUKOPENIA [None]
  - NEUTROPENIA [None]
  - PYREXIA [None]
  - STOMATITIS [None]
